FAERS Safety Report 11544435 (Version 1)
Quarter: 2015Q3

REPORT INFORMATION
  Report Type: Spontaneous
  Country: US (occurrence: None)
  Receive Date: 20150923
  Receipt Date: 20150923
  Transmission Date: 20151125
  Serious: Yes (Other)
  Sender: FDA-Public Use
  Company Number: None

PATIENT
  Age: 77 Year
  Sex: Female
  Weight: 88 kg

DRUGS (17)
  1. ALBUTEROL. [Concomitant]
     Active Substance: ALBUTEROL
  2. FIBER [Concomitant]
     Active Substance: PSYLLIUM HUSK
  3. BIOTIN [Concomitant]
     Active Substance: BIOTIN
  4. HYDROCODONE [Concomitant]
     Active Substance: HYDROCODONE
  5. FUROSEMIDE. [Concomitant]
     Active Substance: FUROSEMIDE
  6. TURMERIC [Concomitant]
     Active Substance: TURMERIC
  7. ALPHA LIPOIC ACID [Concomitant]
     Active Substance: .ALPHA.-LIPOIC ACID
  8. VITAMIN D [Concomitant]
     Active Substance: CHOLECALCIFEROL
  9. VITAMIN C [Concomitant]
     Active Substance: ASCORBIC ACID
  10. DILTIAZEM [Concomitant]
     Active Substance: DILTIAZEM
  11. FLEXHALER [Concomitant]
  12. ELIQUIS [Suspect]
     Active Substance: APIXABAN
     Indication: ATRIAL FIBRILLATION
     Dosage: TAKEN BY MOUTH  (1 PILL)
     Dates: start: 20150821, end: 20150919
  13. SYNTHROID [Concomitant]
     Active Substance: LEVOTHYROXINE SODIUM
  14. RESTASIS [Concomitant]
     Active Substance: CYCLOSPORINE
  15. PULICORT [Concomitant]
  16. DALIRESP [Concomitant]
     Active Substance: ROFLUMILAST
  17. PROPRANOLOL [Concomitant]
     Active Substance: PROPRANOLOL\PROPRANOLOL HYDROCHLORIDE

REACTIONS (7)
  - Abdominal tenderness [None]
  - Malaise [None]
  - Palpitations [None]
  - Asthenia [None]
  - Dizziness [None]
  - Nausea [None]
  - Apparent death [None]

NARRATIVE: CASE EVENT DATE: 20150919
